FAERS Safety Report 17697774 (Version 1)
Quarter: 2020Q2

REPORT INFORMATION
  Report Type: Spontaneous
  Country: US (occurrence: US)
  Receive Date: 20200422
  Receipt Date: 20200422
  Transmission Date: 20200714
  Serious: Yes (Hospitalization)
  Sender: FDA-Public Use
  Company Number: None

PATIENT
  Age: 29 Year
  Sex: Male
  Weight: 72.3 kg

DRUGS (1)
  1. CYTARABINE (63878) [Suspect]
     Active Substance: CYTARABINE
     Dates: end: 20200416

REACTIONS (13)
  - Diarrhoea [None]
  - Tachycardia [None]
  - Respiratory distress [None]
  - Back pain [None]
  - Hypoglycaemia [None]
  - Acute kidney injury [None]
  - Vomiting [None]
  - Hypophagia [None]
  - Hypotension [None]
  - Nausea [None]
  - Abdominal pain [None]
  - Pyrexia [None]
  - Neutropenia [None]

NARRATIVE: CASE EVENT DATE: 20200420
